FAERS Safety Report 15427086 (Version 1)
Quarter: 2018Q3

REPORT INFORMATION
  Report Type: Spontaneous
  Country: US (occurrence: US)
  Receive Date: 20180925
  Receipt Date: 20180925
  Transmission Date: 20181010
  Serious: Yes (Hospitalization)
  Sender: FDA-Public Use
  Company Number: US-VERTEX PHARMACEUTICALS-2018-006966

PATIENT
  Age: 24 Year
  Sex: Female
  Weight: 62 kg

DRUGS (19)
  1. ADVAIR HFA [Concomitant]
     Active Substance: FLUTICASONE PROPIONATE\SALMETEROL XINAFOATE
     Dosage: 1 PUFF(S) 2 TIMES A DAY X 30 DAYS
     Route: 055
  2. RANITIDINE. [Concomitant]
     Active Substance: RANITIDINE
     Dosage: 150 MG, BID
     Dates: end: 20180806
  3. CAYSTON [Concomitant]
     Active Substance: AZTREONAM
     Dosage: 75 MG, TIDX 28 DAYS EVERY OTHER MONTH
     Route: 055
  4. CETIRIZINE                         /00884302/ [Concomitant]
     Active Substance: CETIRIZINE HYDROCHLORIDE
     Dosage: 10 MG, QD
  5. LEVOTHYROXINE. [Concomitant]
     Active Substance: LEVOTHYROXINE
     Dosage: 0.05 MG, QD
     Route: 048
  6. CREON [Concomitant]
     Active Substance: PANCRELIPASE AMYLASE\PANCRELIPASE LIPASE\PANCRELIPASE PROTEASE
     Dosage: 5 CAP(S) ORALLY 3 TIMES A DAY (WITH MEALS) ADN 4 CAPSULES ORALLY TID WITH SNACKS
     Route: 048
  7. VISTARIL                           /00058402/ [Concomitant]
     Active Substance: HYDROXYZINE HYDROCHLORIDE
     Dosage: 1 CAPS, PRN
     Route: 048
  8. ALBUTEROL                          /00139501/ [Concomitant]
     Active Substance: ALBUTEROL
     Dosage: 3 MILLILITER(S) INHALED 2 TIMES A DAY AND Q4 HOURS, AS NEEDED
     Route: 055
  9. VITAMIN E                          /00110501/ [Concomitant]
     Active Substance: TOCOPHEROL
     Dosage: 1 CAP(S) ORALLY ONCE A DAY X 30 DAYS
     Route: 048
  10. HYPERSAL [Concomitant]
     Dosage: 4 MILLILITER, BID
     Route: 055
  11. INVEGA SUSTENNA [Concomitant]
     Active Substance: PALIPERIDONE PALMITATE
     Dosage: 156 MG, ONEC MONTH
     Route: 030
  12. PULMOZYME [Concomitant]
     Active Substance: DORNASE ALFA
     Dosage: 2.5 MILLILITER, QD
  13. AZITHROMYCIN ANHYDROUS. [Concomitant]
     Active Substance: AZITHROMYCIN ANHYDROUS
     Dosage: 500 MG, MONDAY, WEDNESDAY, AND FRIDAY X 30 DAYS
     Route: 048
  14. VITAMIN A                          /00056001/ [Concomitant]
     Active Substance: RETINOL
     Dosage: 10000 INTERNATIONAL UNIT, QD
  15. TOBI [Concomitant]
     Active Substance: TOBRAMYCIN
     Dosage: 4 EACH INHALED 2 TIMES A DAY EVERY OTHER MONTH
     Route: 055
  16. ALBUTEROL                          /00139501/ [Concomitant]
     Active Substance: ALBUTEROL
     Dosage: 2?6 PUFF(S) INHALED EVERY 4 HOURS X 30 DAYS, AS NEEDED
     Route: 055
  17. ERGOCALCIFEROL. [Concomitant]
     Active Substance: ERGOCALCIFEROL
     Dosage: 1 CAP(S) ORALLY ONCE A WEEK X 30 DAYS
     Route: 048
  18. SYMDEKO [Suspect]
     Active Substance: IVACAFTOR\TEZACAFTOR
     Indication: CYSTIC FIBROSIS
     Dosage: 100MG TEZACAFTOR/150MG IVACAFTOR AM; 150MG IVACAFTOR PM
     Route: 048
     Dates: start: 20180501, end: 2018
  19. MIRTAZAPINE. [Concomitant]
     Active Substance: MIRTAZAPINE
     Dosage: 30 MG, QD
     Route: 048

REACTIONS (1)
  - Infective pulmonary exacerbation of cystic fibrosis [Recovered/Resolved]

NARRATIVE: CASE EVENT DATE: 20180717
